FAERS Safety Report 6176790-7 (Version None)
Quarter: 2009Q2

REPORT INFORMATION
  Report Type: 
  Country: None (occurrence: None)
  Receive Date: 20090501
  Receipt Date: 20080826
  Transmission Date: 20091009
  Serious: Yes (Death, Hospitalization, Other)
  Sender: FDA-Public Use
  Company Number: US-ALEXION-A200800011

PATIENT

DRUGS (12)
  1. SOLIRIS [Suspect]
     Indication: PAROXYSMAL NOCTURNAL HAEMOGLOBINURIA
     Dosage: 600 MG, SINGLE
     Route: 042
     Dates: start: 20071001, end: 20071001
  2. SOLIRIS [Suspect]
     Dosage: 900 MG, SINGLE
     Route: 042
     Dates: start: 20071226, end: 20071226
  3. SOLIRIS [Suspect]
     Dosage: 600 MG, SINGLE
     Route: 042
     Dates: start: 20080303, end: 20080303
  4. SOLIRIS [Suspect]
     Dosage: 600 MG, SINGLE
     Route: 042
     Dates: start: 20080310, end: 20080310
  5. SOLIRIS [Suspect]
     Dosage: 600 MG, SINGLE
     Route: 042
     Dates: start: 20080317, end: 20080317
  6. SOLIRIS [Suspect]
     Dosage: 600 MG, SINGLE
     Route: 042
     Dates: start: 20080324, end: 20080324
  7. SOLIRIS [Suspect]
     Dosage: 900 MG, SINGLE
     Route: 042
     Dates: start: 20080331, end: 20080331
  8. SOLIRIS [Suspect]
     Dosage: 900 MG, SINGLE
     Route: 042
     Dates: start: 20080417, end: 20080417
  9. SOLIRIS [Suspect]
     Dosage: 900 MG, SINGLE
     Route: 042
     Dates: start: 20080501, end: 20080501
  10. OXYCODONE [Concomitant]
     Indication: HIP ARTHROPLASTY
     Dosage: 5 MG, 2Q 4 HOURS
     Route: 048
  11. OXYCODONE [Concomitant]
     Indication: KNEE OPERATION
  12. BACLOFEN [Concomitant]
     Indication: RESTLESS LEGS SYNDROME
     Dosage: 20 MG, UNK
     Route: 048

REACTIONS (10)
  - ACUTE RESPIRATORY FAILURE [None]
  - BACK PAIN [None]
  - BLOOD POTASSIUM DECREASED [None]
  - CONFUSIONAL STATE [None]
  - DEHYDRATION [None]
  - PELVIC PAIN [None]
  - RECTAL HAEMORRHAGE [None]
  - SYNCOPE [None]
  - TREATMENT NONCOMPLIANCE [None]
  - URINARY TRACT INFECTION [None]
